FAERS Safety Report 24414478 (Version 2)
Quarter: 2025Q1

REPORT INFORMATION
  Report Type: Spontaneous
  Country: CA (occurrence: CA)
  Receive Date: 20241009
  Receipt Date: 20250123
  Transmission Date: 20250408
  Serious: Yes (Death, Other)
  Sender: ALEXION PHARMACEUTICALS
  Company Number: CA-AstraZeneca-CH-00710252A

PATIENT
  Age: 58 Year

DRUGS (5)
  1. QUETIAPINE FUMARATE [Suspect]
     Active Substance: QUETIAPINE FUMARATE
     Indication: Product used for unknown indication
  2. ABACAVIR SULFATE [Suspect]
     Active Substance: ABACAVIR SULFATE
     Indication: Product used for unknown indication
  3. ACETAMINOPHEN [Suspect]
     Active Substance: ACETAMINOPHEN
  4. ACTEMRA [Suspect]
     Active Substance: TOCILIZUMAB
     Indication: Rheumatoid arthritis
     Route: 065
  5. ADVAIR HFA [Suspect]
     Active Substance: FLUTICASONE PROPIONATE\SALMETEROL XINAFOATE

REACTIONS (38)
  - Overdose [Fatal]
  - Exposure during pregnancy [Fatal]
  - Asthma [Fatal]
  - Back pain [Fatal]
  - Bursitis [Fatal]
  - Coeliac disease [Fatal]
  - Constipation [Fatal]
  - Decreased immune responsiveness [Fatal]
  - Drug hypersensitivity [Fatal]
  - Drug intolerance [Fatal]
  - Erythema [Fatal]
  - Fatigue [Fatal]
  - Fluid retention [Fatal]
  - Foetal death [Fatal]
  - Food allergy [Fatal]
  - Headache [Fatal]
  - Hepatic enzyme increased [Fatal]
  - Hyperhidrosis [Fatal]
  - Hypersensitivity [Fatal]
  - Immunodeficiency [Fatal]
  - Infusion related reaction [Fatal]
  - Joint swelling [Fatal]
  - Pain [Fatal]
  - Prescribed overdose [Fatal]
  - Psoriasis [Fatal]
  - Pyrexia [Fatal]
  - Rash [Fatal]
  - Rash erythematous [Fatal]
  - Rheumatoid arthritis [Fatal]
  - Temperature regulation disorder [Fatal]
  - Thrombocytopenia [Fatal]
  - Upper respiratory tract infection [Fatal]
  - Contraindicated product administered [Fatal]
  - Drug ineffective [Fatal]
  - Intentional product misuse [Fatal]
  - Off label use [Fatal]
  - Product use issue [Fatal]
  - Treatment failure [Fatal]
